FAERS Safety Report 25613068 (Version 1)
Quarter: 2025Q3

REPORT INFORMATION
  Report Type: Report from Study
  Country: GB (occurrence: GB)
  Receive Date: 20250728
  Receipt Date: 20250728
  Transmission Date: 20251021
  Serious: Yes (Other)
  Sender: AMGEN
  Company Number: GB-AMGEN-GBRSL2025144266

PATIENT
  Age: 38 Year
  Sex: Female

DRUGS (1)
  1. USTEKINUMAB [Suspect]
     Active Substance: USTEKINUMAB
     Indication: Crohn^s disease
     Dosage: 90 MILLIGRAM, Q8WK (1 PRE-FILLED SYRINGE)
     Route: 065
     Dates: start: 202504

REACTIONS (2)
  - Lupus-like syndrome [Unknown]
  - White blood cell count increased [Unknown]
